FAERS Safety Report 9922966 (Version 2)
Quarter: 2014Q1

REPORT INFORMATION
  Report Type: Spontaneous
  Country: US (occurrence: US)
  Receive Date: 20140225
  Receipt Date: 20140225
  Transmission Date: 20141002
  Serious: No
  Sender: FDA-Public Use
  Company Number: US-ASTRAZENECA-2013SE82598

PATIENT
  Sex: Male

DRUGS (3)
  1. TOPROL XL [Suspect]
     Route: 048
  2. TOPROL XL [Suspect]
     Dosage: GENERIC FORM
     Route: 048
  3. COREG [Suspect]
     Route: 065

REACTIONS (3)
  - Adverse event [Unknown]
  - Syncope [Unknown]
  - Adverse drug reaction [Unknown]
